FAERS Safety Report 15276199 (Version 1)
Quarter: 2018Q3

REPORT INFORMATION
  Report Type: Spontaneous
  Country: US (occurrence: US)
  Receive Date: 20180728
  Receipt Date: 20180728
  Transmission Date: 20181010
  Serious: No
  Sender: FDA-Public Use
  Company Number: None

PATIENT
  Age: 20 Year

DRUGS (1)
  1. MYCOPHENOLATE 500MG ACCORD [Suspect]
     Active Substance: MYCOPHENOLATE MOFETIL
     Indication: AUTOIMMUNE HEPATITIS
     Route: 048
     Dates: start: 20180703

REACTIONS (3)
  - Blister [None]
  - Rash [None]
  - Pain [None]

NARRATIVE: CASE EVENT DATE: 20180704
